FAERS Safety Report 13429040 (Version 2)
Quarter: 2017Q2

REPORT INFORMATION
  Report Type: Report from Study
  Country: US (occurrence: US)
  Receive Date: 20170411
  Receipt Date: 20170421
  Transmission Date: 20170830
  Serious: Yes (Hospitalization)
  Sender: FDA-Public Use
  Company Number: US-EISAI MEDICAL RESEARCH-EC-2016-020492

PATIENT
  Age: 74 Year
  Sex: Female
  Weight: 61 kg

DRUGS (24)
  1. POTASSIUM [Concomitant]
     Active Substance: POTASSIUM
  2. LENVIMA [Suspect]
     Active Substance: LENVATINIB
     Indication: RENAL CELL CARCINOMA
     Route: 048
     Dates: start: 20160902, end: 20161026
  3. LENVIMA [Suspect]
     Active Substance: LENVATINIB
     Route: 048
     Dates: start: 20161227, end: 2017
  4. ISOSORBIDE. [Concomitant]
     Active Substance: ISOSORBIDE
  5. ALBUTEROL. [Concomitant]
     Active Substance: ALBUTEROL
  6. LANTUS [Concomitant]
     Active Substance: INSULIN GLARGINE
  7. DILTIAZEM. [Concomitant]
     Active Substance: DILTIAZEM
  8. LENVIMA [Suspect]
     Active Substance: LENVATINIB
     Route: 048
     Dates: start: 20161027, end: 2016
  9. VITAMIN D3 [Concomitant]
     Active Substance: CHOLECALCIFEROL
  10. LENVIMA [Suspect]
     Active Substance: LENVATINIB
     Route: 048
     Dates: end: 20170418
  11. IRON [Concomitant]
     Active Substance: IRON
  12. DOCUSATE SODIUM. [Concomitant]
     Active Substance: DOCUSATE SODIUM
  13. VITAMIN C [Concomitant]
     Active Substance: ASCORBIC ACID
  14. COUMADIN [Concomitant]
     Active Substance: WARFARIN SODIUM
  15. CALCIUM PLUS D [Concomitant]
     Active Substance: CALCIUM\VITAMIN D
  16. KLOR-CON [Concomitant]
     Active Substance: POTASSIUM CHLORIDE
  17. MAGNESIUM [Concomitant]
     Active Substance: MAGNESIUM
  18. PRILOSEC [Concomitant]
     Active Substance: OMEPRAZOLE MAGNESIUM
  19. LENVIMA [Suspect]
     Active Substance: LENVATINIB
     Dosage: UNKNOWN HIGHER DOSE
     Route: 048
     Dates: start: 2016, end: 20161226
  20. ASPIRIN. [Concomitant]
     Active Substance: ASPIRIN
  21. SYNTHROID [Concomitant]
     Active Substance: LEVOTHYROXINE SODIUM
  22. BACLOFEN. [Concomitant]
     Active Substance: BACLOFEN
  23. COLACE [Concomitant]
     Active Substance: DOCUSATE SODIUM
  24. AFINITOR [Concomitant]
     Active Substance: EVEROLIMUS

REACTIONS (9)
  - Diarrhoea [Unknown]
  - Nausea [Unknown]
  - Vomiting [Unknown]
  - Abdominal pain upper [Unknown]
  - Dehydration [Unknown]
  - Fatigue [Unknown]
  - Back pain [Unknown]
  - Blood pressure increased [Recovering/Resolving]
  - Night sweats [Unknown]

NARRATIVE: CASE EVENT DATE: 201609
